FAERS Safety Report 13567310 (Version 1)
Quarter: 2017Q2

REPORT INFORMATION
  Report Type: Report from Study
  Country: JP (occurrence: JP)
  Receive Date: 20170522
  Receipt Date: 20170522
  Transmission Date: 20170830
  Serious: Yes (Other)
  Sender: FDA-Public Use
  Company Number: JP-VIFOR (INTERNATIONAL) INC.-VIT-2017-05525

PATIENT
  Age: 63 Year
  Sex: Male
  Weight: 46.8 kg

DRUGS (7)
  1. AMLODIPINE [Concomitant]
     Active Substance: AMLODIPINE BESYLATE
     Route: 048
  2. ENALAPRIL [Concomitant]
     Active Substance: ENALAPRIL
     Route: 048
  3. VELPHORO [Suspect]
     Active Substance: FERRIC OXYHYDROXIDE
     Indication: HYPERPHOSPHATAEMIA
     Route: 048
     Dates: start: 20160517, end: 20160519
  4. TENELIA [Concomitant]
     Active Substance: TENELIGLIPTIN
     Route: 048
  5. VALSARTAN. [Concomitant]
     Active Substance: VALSARTAN
     Route: 048
  6. NESP [Concomitant]
     Active Substance: DARBEPOETIN ALFA
  7. VOGLIBOSE [Concomitant]
     Active Substance: VOGLIBOSE
     Route: 048

REACTIONS (3)
  - Pneumonia aspiration [Unknown]
  - Oral discomfort [Unknown]
  - Product physical issue [Unknown]

NARRATIVE: CASE EVENT DATE: 201605
